FAERS Safety Report 14679812 (Version 1)
Quarter: 2018Q1

REPORT INFORMATION
  Report Type: Report from Study
  Country: US (occurrence: US)
  Receive Date: 20180326
  Receipt Date: 20180326
  Transmission Date: 20180509
  Serious: Yes (Hospitalization)
  Sender: FDA-Public Use
  Company Number: US-CELGENEUS-USA-20180307248

PATIENT
  Age: 56 Year
  Sex: Female
  Weight: 61.29 kg

DRUGS (1)
  1. REVLIMID [Suspect]
     Active Substance: LENALIDOMIDE
     Indication: PLASMA CELL MYELOMA
     Route: 048
     Dates: start: 20160706

REACTIONS (3)
  - Pollakiuria [Unknown]
  - Acute sinusitis [Unknown]
  - Syncope [Unknown]

NARRATIVE: CASE EVENT DATE: 20180319
